FAERS Safety Report 9116676 (Version 1)
Quarter: 2013Q1

REPORT INFORMATION
  Report Type: Spontaneous
  Country: CA (occurrence: CA)
  Receive Date: 20130225
  Receipt Date: 20130225
  Transmission Date: 20140127
  Serious: Yes (Disabling)
  Sender: FDA-Public Use
  Company Number: CA-ROCHE-1194391

PATIENT
  Age: 64 Year
  Sex: Male
  Weight: 74 kg

DRUGS (4)
  1. TAMIFLU [Suspect]
     Indication: PRODUCT USED FOR UNKNOWN INDICATION
     Route: 048
  2. HYDROMORPHONE [Concomitant]
     Route: 065
  3. IMIPENEM/CILASTATIN [Concomitant]
     Route: 042
  4. METRONIDAZOLE [Concomitant]
     Route: 048

REACTIONS (2)
  - Delirium [Not Recovered/Not Resolved]
  - Nervous system disorder [Not Recovered/Not Resolved]
